FAERS Safety Report 18550834 (Version 1)
Quarter: 2020Q4

REPORT INFORMATION
  Report Type: Spontaneous
  Country: US (occurrence: US)
  Receive Date: 20201126
  Receipt Date: 20201126
  Transmission Date: 20210114
  Serious: No
  Sender: FDA-Public Use
  Company Number: US-PFIZER INC-2020466418

PATIENT
  Age: 75 Year
  Sex: Female
  Weight: 53.52 kg

DRUGS (2)
  1. CELECOXIB. [Suspect]
     Active Substance: CELECOXIB
     Indication: ARTHRALGIA
     Dosage: 200 MG, 2X/DAY
     Route: 048
  2. CELECOXIB. [Suspect]
     Active Substance: CELECOXIB
     Indication: INFLAMMATION

REACTIONS (2)
  - Renal disorder [Unknown]
  - Drug ineffective [Unknown]
